FAERS Safety Report 6835741-X (Version None)
Quarter: 2010Q3

REPORT INFORMATION
  Report Type: 
  Country: None (occurrence: None)
  Receive Date: 20100712
  Receipt Date: 20100712
  Transmission Date: 20110219
  Serious: Yes (Hospitalization)
  Sender: FDA-Public Use
  Company Number: None

PATIENT
  Age: 38 Year
  Sex: Female

DRUGS (2)
  1. SAVELLA [Suspect]
     Indication: FIBROMYALGIA
     Dosage: TITRATION PACK PO
     Route: 048
     Dates: start: 20100706, end: 20100707
  2. TRAZODONE HCL [Suspect]
     Indication: INSOMNIA
     Dosage: 300MG HS PO
     Route: 048
     Dates: start: 20091219, end: 20100706

REACTIONS (2)
  - DRUG INTERACTION [None]
  - SEROTONIN SYNDROME [None]
